FAERS Safety Report 24632000 (Version 2)
Quarter: 2024Q4

REPORT INFORMATION
  Report Type: Report from Study
  Country: FR (occurrence: FR)
  Receive Date: 20241118
  Receipt Date: 20241204
  Transmission Date: 20250115
  Serious: Yes (Other)
  Sender: ALEXION PHARMACEUTICALS
  Company Number: FR-AstraZeneca-2024A154478

PATIENT
  Age: 57 Year
  Weight: 70.998 kg

DRUGS (12)
  1. DURVALUMAB [Suspect]
     Active Substance: DURVALUMAB
     Indication: Bile duct adenocarcinoma
     Dosage: 1500 MILLIGRAM, Q3W
  2. DURVALUMAB [Suspect]
     Active Substance: DURVALUMAB
     Dosage: 1500 MILLIGRAM, Q3W
  3. DURVALUMAB [Suspect]
     Active Substance: DURVALUMAB
     Dosage: 1500 MILLIGRAM, Q3W
  4. DURVALUMAB [Suspect]
     Active Substance: DURVALUMAB
     Dosage: 1500 MILLIGRAM, Q3W
  5. GEMZAR [Suspect]
     Active Substance: GEMCITABINE HYDROCHLORIDE
     Indication: Bile duct adenocarcinoma
     Dosage: 1 DOSAGE FORM, Q CYCLE
  6. GEMZAR [Suspect]
     Active Substance: GEMCITABINE HYDROCHLORIDE
     Dosage: 1 DOSAGE FORM, Q CYCLE
  7. GEMZAR [Suspect]
     Active Substance: GEMCITABINE HYDROCHLORIDE
     Dosage: 1 DOSAGE FORM, Q CYCLE
  8. GEMZAR [Suspect]
     Active Substance: GEMCITABINE HYDROCHLORIDE
     Dosage: 1 DOSAGE FORM, Q CYCLE
  9. CISPLATIN [Suspect]
     Active Substance: CISPLATIN
     Indication: Bile duct adenocarcinoma
     Dosage: 1 DOSAGE FORM, Q CYCLE
  10. CISPLATIN [Suspect]
     Active Substance: CISPLATIN
     Dosage: 1 DOSAGE FORM, Q CYCLE
  11. CISPLATIN [Suspect]
     Active Substance: CISPLATIN
     Dosage: 1 DOSAGE FORM, Q CYCLE
  12. CISPLATIN [Suspect]
     Active Substance: CISPLATIN
     Dosage: 1 DOSAGE FORM, Q CYCLE

REACTIONS (1)
  - Deep vein thrombosis [Recovering/Resolving]
